FAERS Safety Report 8511542-1 (Version None)
Quarter: 2012Q3

REPORT INFORMATION
  Report Type: 
  Country: None (occurrence: None)
  Receive Date: 20120716
  Receipt Date: 20120707
  Transmission Date: 20120928
  Serious: Yes (Disabling, Other)
  Sender: FDA-Public Use
  Company Number: PHHY2012BR059222

PATIENT
  Sex: Male

DRUGS (5)
  1. SPIRIVA [Concomitant]
     Indication: EMPHYSEMA
     Dosage: 1 DF, QD
  2. LEXOTAN [Concomitant]
     Indication: SLEEP DISORDER
     Dosage: UNK UKN, UNK
  3. LIPITOR [Concomitant]
     Indication: BLOOD CHOLESTEROL ABNORMAL
     Dosage: UNK UKN, UNK
  4. FORMOTEROL FUMARATE [Suspect]
     Indication: EMPHYSEMA
     Dosage: UNK UKN, BID, ONE IN THE MORNING AND ONE AT NIGHT
  5. ATACAND [Concomitant]
     Indication: HYPERTENSION
     Dosage: UNK UKN, UNK

REACTIONS (4)
  - FALL [None]
  - FEMUR FRACTURE [None]
  - DEPRESSION [None]
  - MALAISE [None]
